FAERS Safety Report 16111231 (Version 1)
Quarter: 2019Q1

REPORT INFORMATION
  Report Type: Spontaneous
  Country: US (occurrence: US)
  Receive Date: 20190220
  Receipt Date: 20190220
  Transmission Date: 20190418
  Serious: Yes (Hospitalization)
  Sender: FDA-Public Use
  Company Number: None

PATIENT
  Age: 45 Year
  Sex: Female

DRUGS (16)
  1. LINZESS [Concomitant]
     Active Substance: LINACLOTIDE
  2. TRINTELLIX [Concomitant]
     Active Substance: VORTIOXETINE HYDROBROMIDE
  3. VENTOLIN [Concomitant]
     Active Substance: ALBUTEROL SULFATE
  4. FLOVENT [Concomitant]
     Active Substance: FLUTICASONE PROPIONATE
  5. HYDROCO/APAP [Concomitant]
     Active Substance: ACETAMINOPHEN\HYDROCODONE
  6. METFORMIN [Concomitant]
     Active Substance: METFORMIN HYDROCHLORIDE
  7. TURBINAFINE [Concomitant]
  8. COSENTYX [Suspect]
     Active Substance: SECUKINUMAB
     Indication: PSORIATIC ARTHROPATHY
     Dosage: 150MG WEEKLY UTD
     Dates: start: 20181218
  9. DIAZEPAM. [Concomitant]
     Active Substance: DIAZEPAM
  10. PILOCARPINE. [Concomitant]
     Active Substance: PILOCARPINE
  11. CEPHALEXIN. [Concomitant]
     Active Substance: CEPHALEXIN
  12. AMITRIPYLIN [Concomitant]
  13. AMPNET/DEXTER [Concomitant]
  14. OXYBUTYNIN. [Concomitant]
     Active Substance: OXYBUTYNIN CHLORIDE
  15. OXYCODONE [Concomitant]
     Active Substance: OXYCODONE
  16. TOPIRAMATE. [Concomitant]
     Active Substance: TOPIRAMATE

REACTIONS (7)
  - Fall [None]
  - Upper limb fracture [None]
  - Joint dislocation [None]
  - Cardiac disorder [None]
  - Hypertension [None]
  - Sepsis [None]
  - Liver function test increased [None]

NARRATIVE: CASE EVENT DATE: 20190211
